FAERS Safety Report 7443667-6 (Version None)
Quarter: 2011Q2

REPORT INFORMATION
  Report Type: 
  Country: None (occurrence: None)
  Receive Date: 20110428
  Receipt Date: 20110415
  Transmission Date: 20111010
  Serious: Yes (Hospitalization)
  Sender: FDA-Public Use
  Company Number: DK-NOVOPROD-327345

PATIENT
  Sex: Female

DRUGS (9)
  1. FURIX [Concomitant]
  2. COZAAR [Concomitant]
  3. VICTOZA [Suspect]
     Indication: DIABETES MELLITUS
     Dosage: 1.2 MG, UNK
     Route: 058
     Dates: start: 20101210, end: 20101212
  4. NOVOLOG MIX 70/30 [Concomitant]
     Dosage: UNK
  5. ASPIRIN AND DIPYRIDAMOLE [Concomitant]
  6. SIMVASTATIN [Concomitant]
  7. ISOPTIN                            /00014302/ [Concomitant]
  8. HALCION [Concomitant]
  9. PANTOLOC                           /01263202/ [Concomitant]

REACTIONS (1)
  - URTICARIA [None]
